FAERS Safety Report 14771903 (Version 2)
Quarter: 2018Q2

REPORT INFORMATION
  Report Type: Spontaneous
  Country: IL (occurrence: IL)
  Receive Date: 20180417
  Receipt Date: 20180420
  Transmission Date: 20180711
  Serious: Yes (Death, Hospitalization, Other)
  Sender: FDA-Public Use
  Company Number: IL-JAZZ-2018-IL-003522

PATIENT
  Sex: Female

DRUGS (1)
  1. DEFITELIO [Suspect]
     Active Substance: DEFIBROTIDE SODIUM
     Indication: VENOOCCLUSIVE DISEASE
     Dosage: 25 MG/KG, QD
     Dates: start: 20180207, end: 20180222

REACTIONS (3)
  - Interstitial lung disease [Unknown]
  - Pulmonary haemorrhage [Recovered/Resolved]
  - Multiple organ dysfunction syndrome [Fatal]

NARRATIVE: CASE EVENT DATE: 2018
